FAERS Safety Report 7558058-7 (Version None)
Quarter: 2011Q2

REPORT INFORMATION
  Report Type: 
  Country: None (occurrence: None)
  Receive Date: 20110620
  Receipt Date: 20110609
  Transmission Date: 20111010
  Serious: Yes (Hospitalization)
  Sender: FDA-Public Use
  Company Number: GB-UCBSA-034512

PATIENT
  Sex: Male
  Weight: 69.9 kg

DRUGS (5)
  1. CARBAMAZEPINE [Concomitant]
     Route: 048
  2. CLOBAZAM [Concomitant]
     Route: 048
  3. VIMPAT [Suspect]
     Indication: PARTIAL SEIZURES
     Dosage: INITIATED AT AN UNKNOWN DOSE; INCREASED TO 200 MG TWICE DAILY
     Route: 048
     Dates: start: 20091001, end: 20100301
  4. VIMPAT [Suspect]
     Route: 048
     Dates: start: 20100301, end: 20100101
  5. TOPIRAMATE [Concomitant]
     Route: 048

REACTIONS (4)
  - DIPLOPIA [None]
  - LETHARGY [None]
  - VISION BLURRED [None]
  - SOMNOLENCE [None]
